FAERS Safety Report 4877305-3 (Version None)
Quarter: 2006Q1

REPORT INFORMATION
  Report Type: 
  Country: None (occurrence: None)
  Receive Date: 20060106
  Receipt Date: 20051223
  Transmission Date: 20060701
  Serious: Yes (Life-Threatening)
  Sender: FDA-Public Use
  Company Number: MK200601-0011-1

PATIENT
  Age: 70 Year
  Sex: Male

DRUGS (2)
  1. HEXABRIX [Suspect]
     Indication: ARTHROGRAM
     Dosage: 10 ML, SINGLE US, IA
     Route: 014
     Dates: start: 20051214, end: 20051214
  2. ATARAX [Concomitant]

REACTIONS (3)
  - LOSS OF CONSCIOUSNESS [None]
  - POST PROCEDURAL COMPLICATION [None]
  - RESPIRATORY DISTRESS [None]
